FAERS Safety Report 8097742-6 (Version None)
Quarter: 2012Q1

REPORT INFORMATION
  Report Type: 
  Country: None (occurrence: None)
  Receive Date: 20120128
  Receipt Date: 20110712
  Transmission Date: 20120608
  Serious: No
  Sender: FDA-Public Use
  Company Number: US-ABBOTT-11P-163-0839835-00

PATIENT
  Sex: Female
  Weight: 61.29 kg

DRUGS (8)
  1. WELCHOL [Concomitant]
     Indication: BLOOD CHOLESTEROL INCREASED
  2. HUMIRA [Suspect]
     Indication: RHEUMATOID ARTHRITIS
     Dates: start: 20090101, end: 20110301
  3. HUMIRA [Suspect]
     Dates: start: 20110501
  4. PREDNISONE PACK [Concomitant]
     Indication: RHEUMATOID ARTHRITIS
  5. METHOTREXATE [Concomitant]
     Indication: RHEUMATOID ARTHRITIS
  6. DIOVAN [Concomitant]
     Indication: HYPERTENSION
  7. TRAMADOL HCL [Concomitant]
     Indication: PAIN
  8. ACTONEL [Concomitant]
     Indication: OSTEOPOROSIS PROPHYLAXIS

REACTIONS (2)
  - INFLUENZA [None]
  - RHEUMATOID ARTHRITIS [None]
